FAERS Safety Report 11826200 (Version 1)
Quarter: 2015Q4

REPORT INFORMATION
  Report Type: Spontaneous
  Country: US (occurrence: None)
  Receive Date: 20151210
  Receipt Date: 20151210
  Transmission Date: 20160305
  Serious: No
  Sender: FDA-Public Use
  Company Number: None

PATIENT
  Age: 60 Year
  Sex: Female

DRUGS (1)
  1. STELARA [Suspect]
     Active Substance: USTEKINUMAB
     Dosage: 90MG?EVERY ?SQ?THERAPY ?11132015 TO ONE DOSE
     Route: 058
     Dates: start: 20151113

REACTIONS (3)
  - Diarrhoea [None]
  - Headache [None]
  - Eye pain [None]
